FAERS Safety Report 13851226 (Version 1)
Quarter: 2017Q3

REPORT INFORMATION
  Report Type: Spontaneous
  Country: US (occurrence: US)
  Receive Date: 20170809
  Receipt Date: 20170809
  Transmission Date: 20171127
  Serious: Yes (Hospitalization)
  Sender: FDA-Public Use
  Company Number: US-B.I. PHARMACEUTICALS,INC./RIDGEFIELD-2017-BI-043425

PATIENT
  Age: 55 Year
  Sex: Female

DRUGS (2)
  1. SPIRIVA [Suspect]
     Active Substance: TIOTROPIUM BROMIDE MONOHYDRATE
     Indication: CHRONIC OBSTRUCTIVE PULMONARY DISEASE
     Dosage: 2 INHALATIONS FROM ONE DAILY;  FORM STRENGTH: 18 MCG; FORMULATION: CAPSULE? ADMINISTRATION CORRECT?
     Route: 055
     Dates: start: 200702
  2. SYNTHROID [Concomitant]
     Active Substance: LEVOTHYROXINE SODIUM
     Indication: HYPOTHYROIDISM
     Dosage: ONE TABLET DAILY;  FORM STRENGTH: 150MCG; FORMULATION: TABLET
     Route: 048
     Dates: start: 2007

REACTIONS (4)
  - Knee arthroplasty [Recovered/Resolved with Sequelae]
  - Knee operation [Recovered/Resolved]
  - Knee operation [Unknown]
  - Nasal polyps [Recovered/Resolved]

NARRATIVE: CASE EVENT DATE: 200904
